FAERS Safety Report 7108237-8 (Version None)
Quarter: 2010Q4

REPORT INFORMATION
  Report Type: 
  Country: None (occurrence: None)
  Receive Date: 20101117
  Receipt Date: 20101105
  Transmission Date: 20110411
  Serious: Yes (Hospitalization)
  Sender: FDA-Public Use
  Company Number: GB-ELI_LILLY_AND_COMPANY-GB200911000923

PATIENT
  Sex: Female
  Weight: 57.9 kg

DRUGS (10)
  1. GEMCITABINE HCL [Suspect]
     Indication: BREAST CANCER METASTATIC
     Dosage: 1000 MG/M2 (1596MG) ON DAY 1 AND 8 EVERY 3 WEEKS
     Route: 042
     Dates: start: 20091023, end: 20091023
  2. VINFLUNINE [Suspect]
     Indication: BREAST CANCER METASTATIC
     Dosage: 320 MG/M2 (512.5MG) ON DAY 1 EVERY 3 WEEKS
     Route: 042
     Dates: start: 20091023, end: 20091023
  3. GABAPENTIN [Concomitant]
     Dosage: UNK, UNK
     Dates: start: 20090901
  4. CUPROFEN [Concomitant]
     Dates: start: 20020101
  5. CITALOPRAM [Concomitant]
     Dates: start: 20020101
  6. IBANDRONATE SODIUM [Concomitant]
     Dosage: UNK, UNK
     Dates: start: 20090105
  7. OMEPRAZOLE [Concomitant]
     Dates: start: 20091001
  8. SINUTAB [Concomitant]
     Dates: start: 20020101
  9. DOMPERIDONE [Concomitant]
     Dates: start: 20091023
  10. DOCUSATE SODIUM [Concomitant]
     Dates: start: 20091023

REACTIONS (5)
  - BONE PAIN [None]
  - CONSTIPATION [None]
  - ORAL PAIN [None]
  - PAIN IN EXTREMITY [None]
  - PAIN IN JAW [None]
